FAERS Safety Report 25510488 (Version 1)
Quarter: 2025Q3

REPORT INFORMATION
  Report Type: Spontaneous
  Country: US (occurrence: None)
  Receive Date: 20250703
  Receipt Date: 20250703
  Transmission Date: 20251021
  Serious: Yes (Other)
  Sender: FDA-CTU
  Company Number: None

PATIENT
  Sex: Female
  Weight: 60.75 kg

DRUGS (2)
  1. SUBOXONE [Suspect]
     Active Substance: BUPRENORPHINE HYDROCHLORIDE\NALOXONE HYDROCHLORIDE
     Indication: Drug dependence
     Dosage: OTHER QUANTITY : 2 16;?FREQUENCY : DAILY;?
     Route: 060
  2. SUBOXONE 16MG DAILY [Concomitant]

REACTIONS (3)
  - Tooth loss [None]
  - Depression [None]
  - Self esteem decreased [None]
